FAERS Safety Report 14933427 (Version 2)
Quarter: 2018Q2

REPORT INFORMATION
  Report Type: Spontaneous
  Country: JP (occurrence: JP)
  Receive Date: 20180524
  Receipt Date: 20180612
  Transmission Date: 20180711
  Serious: Yes (Hospitalization)
  Sender: FDA-Public Use
  Company Number: JP-ELI_LILLY_AND_COMPANY-JP201805008868AA

PATIENT
  Age: 65 Year

DRUGS (4)
  1. CYRAMZA [Suspect]
     Active Substance: RAMUCIRUMAB
     Indication: PRODUCT USED FOR UNKNOWN INDICATION
     Route: 041
  2. 5-FU                               /00098801/ [Concomitant]
     Active Substance: FLUOROURACIL
  3. IRINOTECAN HYDROCHLORIDE. [Concomitant]
     Active Substance: IRINOTECAN HYDROCHLORIDE
  4. LEVOFOLINATE                       /06682103/ [Concomitant]
     Active Substance: LEVOLEUCOVORIN CALCIUM

REACTIONS (1)
  - Hepatic failure [Not Recovered/Not Resolved]
